FAERS Safety Report 5643092-4 (Version None)
Quarter: 2008Q1

REPORT INFORMATION
  Report Type: 
  Country: None (occurrence: None)
  Receive Date: 20080227
  Receipt Date: 20080227
  Transmission Date: 20080703
  Serious: Yes (Hospitalization)
  Sender: FDA-Public Use
  Company Number: None

PATIENT
  Sex: Male
  Weight: 55.6 kg

DRUGS (1)
  1. CISPLATIN [Suspect]
     Dosage: 180 MG
     Dates: start: 20070521

REACTIONS (3)
  - ANAEMIA [None]
  - DEHYDRATION [None]
  - LABORATORY TEST ABNORMAL [None]
